FAERS Safety Report 6328684-1 (Version None)
Quarter: 2009Q3

REPORT INFORMATION
  Report Type: 
  Country: None (occurrence: None)
  Receive Date: 20090826
  Receipt Date: 20090819
  Transmission Date: 20100115
  Serious: Yes (Other)
  Sender: FDA-Public Use
  Company Number: PHHY2009JP35151

PATIENT
  Age: 84 Year
  Sex: Female

DRUGS (5)
  1. DIOVAN [Suspect]
     Indication: HYPERTENSION
     Dosage: 80 MG DAILY
     Route: 048
     Dates: end: 20090701
  2. DIOVAN [Suspect]
     Dosage: 80 MG DAILY
     Route: 048
     Dates: start: 20090701
  3. DIOVAN HCT [Suspect]
     Indication: HYPERTENSION
     Dosage: 80/6.25 MG DAILY
     Route: 048
     Dates: start: 20090701, end: 20090701
  4. LUPRAC [Concomitant]
     Route: 048
  5. ASPIRIN [Concomitant]
     Route: 048

REACTIONS (6)
  - ATRIAL FIBRILLATION [None]
  - BLOOD PRESSURE DECREASED [None]
  - BLOOD PRESSURE INCREASED [None]
  - CARDIAC FAILURE [None]
  - DYSPNOEA [None]
  - OEDEMA [None]
